FAERS Safety Report 10009823 (Version 1)
Quarter: 2014Q1

REPORT INFORMATION
  Report Type: Spontaneous
  Country: US (occurrence: US)
  Receive Date: 20140312
  Receipt Date: 20140312
  Transmission Date: 20141002
  Serious: No
  Sender: FDA-Public Use
  Company Number: US-INCYTE CORPORATION-2012IN002439

PATIENT
  Age: 68 Year
  Sex: Male

DRUGS (2)
  1. JAKAFI [Suspect]
     Indication: MYELOFIBROSIS
     Dosage: 20 MG, QD
     Route: 048
     Dates: start: 201201, end: 20121112
  2. JAKAFI [Suspect]
     Dosage: 1/2 OF 20 MG TABLET, QD
     Route: 048
     Dates: start: 20121113

REACTIONS (3)
  - Splenomegaly [Unknown]
  - Drug ineffective [Unknown]
  - Drug prescribing error [None]
